FAERS Safety Report 6506092-8 (Version None)
Quarter: 2009Q4

REPORT INFORMATION
  Report Type: 
  Country: None (occurrence: None)
  Receive Date: 20091218
  Receipt Date: 20091215
  Transmission Date: 20100525
  Serious: No
  Sender: FDA-Public Use
  Company Number: US-ROXANE LABORATORIES, INC.-2009-RO-01273RO

PATIENT
  Sex: Female

DRUGS (1)
  1. CODEINE [Suspect]

REACTIONS (2)
  - DRUG HYPERSENSITIVITY [None]
  - RASH [None]
